FAERS Safety Report 22344604 (Version 1)
Quarter: 2023Q2

REPORT INFORMATION
  Report Type: Spontaneous
  Country: HU (occurrence: HU)
  Receive Date: 20230519
  Receipt Date: 20230519
  Transmission Date: 20230722
  Serious: Yes (Other)
  Sender: FDA-Public Use
  Company Number: HU-002147023-NVSC2023HU113775

PATIENT
  Age: 74 Year
  Sex: Female

DRUGS (3)
  1. RIBOCICLIB [Suspect]
     Active Substance: RIBOCICLIB
     Indication: Breast cancer metastatic
     Dosage: 600 MG
     Route: 065
     Dates: start: 202207
  2. LETROZOLE [Suspect]
     Active Substance: LETROZOLE
     Indication: Breast cancer metastatic
     Dosage: UNK
     Route: 065
     Dates: start: 202206
  3. DENOSUMAB [Concomitant]
     Active Substance: DENOSUMAB
     Indication: Breast cancer metastatic
     Dosage: UNK
     Route: 065
     Dates: start: 202208

REACTIONS (19)
  - Pericardial effusion [Unknown]
  - Renal failure [Unknown]
  - Nephrolithiasis [Unknown]
  - Ureteritis [Unknown]
  - Metastases to bone [Unknown]
  - Electrocardiogram QT prolonged [Recovering/Resolving]
  - Lung disorder [Not Recovered/Not Resolved]
  - Arteriosclerosis [Unknown]
  - Hepatomegaly [Unknown]
  - Renal cyst [Unknown]
  - Goitre [Unknown]
  - Lymphadenopathy [Unknown]
  - Cholelithiasis [Unknown]
  - White blood cells urine [Unknown]
  - Haemoglobin decreased [Recovered/Resolved]
  - Neutrophil count decreased [Recovered/Resolved]
  - Platelet count decreased [Recovered/Resolved]
  - Oedema peripheral [Recovered/Resolved]
  - Bacteriuria [Unknown]

NARRATIVE: CASE EVENT DATE: 20220801
